FAERS Safety Report 8506517-2 (Version None)
Quarter: 2012Q3

REPORT INFORMATION
  Report Type: 
  Country: None (occurrence: None)
  Receive Date: 20120706
  Receipt Date: 20120706
  Transmission Date: 20120928
  Serious: Yes (Other)
  Sender: FDA-Public Use
  Company Number: None

PATIENT
  Age: 33 Year
  Sex: Female
  Weight: 52.1637 kg

DRUGS (2)
  1. COMPLERA [Suspect]
     Indication: HIV INFECTION
     Dosage: 1 TABLET DAILY BY MOUTH/ORAL
     Route: 048
     Dates: start: 20120314, end: 20120521
  2. ATRIPLA [Suspect]

REACTIONS (3)
  - OEDEMA PERIPHERAL [None]
  - MALAISE [None]
  - FATIGUE [None]
